FAERS Safety Report 5418720-9 (Version None)
Quarter: 2007Q3

REPORT INFORMATION
  Report Type: 
  Country: None (occurrence: None)
  Receive Date: 20070817
  Receipt Date: 20070810
  Transmission Date: 20080115
  Serious: Yes (Other)
  Sender: FDA-Public Use
  Company Number: US-PFIZER INC-2007053273

PATIENT
  Sex: Female

DRUGS (4)
  1. LIPITOR [Suspect]
     Dosage: DAILY DOSE:40MG/KG
     Dates: start: 20060101, end: 20070701
  2. METFORMIN HCL [Concomitant]
  3. MULTIVITAMIN [Concomitant]
  4. ALL OTHER THERAPEUTIC PRODUCTS [Concomitant]

REACTIONS (13)
  - ANAEMIA [None]
  - ANGIOPATHY [None]
  - HEPATIC CIRRHOSIS [None]
  - HIATUS HERNIA [None]
  - INTESTINAL POLYP [None]
  - LUNG NEOPLASM [None]
  - LYMPHADENOPATHY [None]
  - PANCYTOPENIA [None]
  - PLATELET COUNT INCREASED [None]
  - PORTAL HYPERTENSION [None]
  - RED BLOOD CELL COUNT INCREASED [None]
  - SPLENOMEGALY [None]
  - WHITE BLOOD CELL COUNT INCREASED [None]
